FAERS Safety Report 5532256-6 (Version None)
Quarter: 2007Q4

REPORT INFORMATION
  Report Type: 
  Country: None (occurrence: None)
  Receive Date: 20071203
  Receipt Date: 20071127
  Transmission Date: 20080405
  Serious: Yes (Hospitalization)
  Sender: FDA-Public Use
  Company Number: US-SANOFI-SYNTHELABO-D01200705553

PATIENT
  Sex: Female
  Weight: 74.7 kg

DRUGS (32)
  1. PRILOSEC [Concomitant]
     Dates: start: 20070801
  2. AVASTIN [Suspect]
     Dates: start: 20070813, end: 20070813
  3. LEXAPRO [Concomitant]
  4. POTASSIUM CHLORIDE [Concomitant]
     Dates: start: 20070611
  5. BENTYL [Concomitant]
  6. HYDROCHLOROTHIAZIDE [Concomitant]
     Dates: start: 20070226
  7. TOPROL-XL [Concomitant]
     Dates: start: 20070416
  8. ZOFRAN [Concomitant]
     Dates: start: 20070226
  9. XANAX [Concomitant]
     Dates: start: 20070202
  10. LEUCOVORIN CALCIUM [Suspect]
     Route: 042
     Dates: start: 20070813, end: 20070813
  11. FLUOROURACIL [Suspect]
     Dosage: 400 MG/M?, IV BOLUS D1+D2 FOLLOWED BY 5-FU 2400 MG/M? OVER 46-HOUR CONTINUOUS INFUSION.
     Route: 042
     Dates: start: 20070813, end: 20070813
  12. OXALIPLATIN [Suspect]
     Route: 042
     Dates: start: 20070813, end: 20070813
  13. SR57746 OR PLACEBO [Suspect]
     Indication: NEUROLOGICAL SYMPTOM
     Route: 048
     Dates: start: 20070224, end: 20070814
  14. ESCITALOPRAM OXALATE [Concomitant]
     Dates: start: 20070523, end: 20070617
  15. PEGFILGRASTIM [Concomitant]
     Dates: start: 20070425, end: 20070815
  16. GRANISETRON  HCL [Concomitant]
     Dates: start: 20070423
  17. ATROPINE [Concomitant]
     Dates: start: 20070605
  18. DIPHENOXYLATE [Concomitant]
     Dates: start: 20070605
  19. METOCLOPRAMIDE [Concomitant]
     Dates: start: 20070618, end: 20070815
  20. PRILOCAINE [Concomitant]
     Dates: start: 20070618
  21. DEXAMETHASONE [Concomitant]
     Dates: start: 20070226, end: 20070827
  22. PALONOSETRON HYDROCHLORIDE [Concomitant]
     Dates: start: 20070226, end: 20070827
  23. VITAMIN B-12 [Concomitant]
     Dates: start: 20070716
  24. DICYCLOMINE [Concomitant]
     Dates: start: 20070605
  25. GUAIFENESIN [Concomitant]
     Dates: start: 20070423
  26. HYDROCODONE BITARTRATE [Concomitant]
     Dates: start: 20070423, end: 20070827
  27. ESOMEPRAZOLE [Concomitant]
     Dates: start: 20070416, end: 20070731
  28. ASPIRIN [Concomitant]
     Dates: start: 20070416
  29. CODEINE SUL TAB [Concomitant]
     Dates: start: 20070328
  30. ACETAMINOPHEN [Concomitant]
     Dates: start: 20070328
  31. LOPERAMIDE HCL [Concomitant]
     Dates: start: 20070228
  32. PROPOXYPHENE NAPSYLATE [Concomitant]
     Dates: start: 20070205

REACTIONS (3)
  - FALL [None]
  - SUBDURAL HAEMORRHAGE [None]
  - SYNCOPE [None]
